FAERS Safety Report 4842810-2 (Version None)
Quarter: 2005Q4

REPORT INFORMATION
  Report Type: 
  Country: None (occurrence: None)
  Receive Date: 20051130
  Receipt Date: 20051116
  Transmission Date: 20060501
  Serious: Yes (Life-Threatening)
  Sender: FDA-Public Use
  Company Number: 2005P1000582

PATIENT
  Age: 58 Year
  Sex: Male

DRUGS (2)
  1. NICARDIPINE HCL [Suspect]
     Indication: AORTIC DISSECTION
     Dosage: UNKNOWN; IV
     Route: 042
     Dates: end: 20051031
  2. DILTIAZEM [Suspect]
     Indication: AORTIC DISSECTION
     Dosage: UNKNOWN
     Route: 065

REACTIONS (1)
  - BRADYCARDIA [None]
